FAERS Safety Report 8841267 (Version 3)
Quarter: 2012Q4

REPORT INFORMATION
  Report Type: 
  Country: RU (occurrence: RU)
  Receive Date: 20121015
  Receipt Date: 20121206
  Transmission Date: 20130627
  Serious: Yes (Death, Hospitalization)
  Sender: FDA-Public Use
  Company Number: DE-ASTRAZENECA-2012SE78467

PATIENT
  Age: 73 Year
  Sex: Male
  Weight: 73 kg

DRUGS (12)
  1. OMEPRAZOLE [Suspect]
     Route: 048
     Dates: start: 20120914
  2. MAGNESIUM SULFATE [Suspect]
     Indication: PERIPHERAL ARTERIAL OCCLUSIVE DISEASE
     Route: 065
  3. TORVACARD [Suspect]
  4. XARELTO [Suspect]
     Indication: ATRIAL FIBRILLATION
     Route: 048
     Dates: start: 20120919, end: 20120927
  5. XARELTO [Suspect]
     Indication: CEREBROVASCULAR ACCIDENT PROPHYLAXIS
     Route: 048
     Dates: start: 20120919, end: 20120927
  6. XARELTO [Suspect]
     Indication: ATRIAL FIBRILLATION
     Route: 048
  7. XARELTO [Suspect]
     Indication: CEREBROVASCULAR ACCIDENT PROPHYLAXIS
     Route: 048
  8. CERAXON [Suspect]
     Indication: MITRAL VALVE PROLAPSE
     Route: 065
     Dates: start: 20120914
  9. CERAXON [Suspect]
     Indication: HYPERTENSION
     Route: 065
     Dates: start: 20120914
  10. ACTOVEGIN [Suspect]
     Indication: MITRAL VALVE PROLAPSE
     Route: 065
     Dates: start: 20120914
  11. ACTOVEGIN [Suspect]
     Indication: HYPERTENSION
     Route: 065
     Dates: start: 20120914
  12. INDAPAMIDE [Suspect]
     Indication: PERIPHERAL ARTERIAL OCCLUSIVE DISEASE
     Route: 065
     Dates: start: 20120914

REACTIONS (2)
  - Haemorrhoidal haemorrhage [Recovered/Resolved]
  - Ischaemic stroke [Fatal]
